FAERS Safety Report 9265771 (Version 1)
Quarter: 2013Q2

REPORT INFORMATION
  Report Type: Spontaneous
  Country: US (occurrence: US)
  Receive Date: 20130501
  Receipt Date: 20130501
  Transmission Date: 20140414
  Serious: Yes (Hospitalization)
  Sender: FDA-Public Use
  Company Number: US-GILEAD-2013-0074336

PATIENT
  Sex: Female

DRUGS (1)
  1. LETAIRIS [Suspect]
     Indication: PRODUCT USED FOR UNKNOWN INDICATION
     Dosage: 5 MG, UNK
     Route: 048
     Dates: start: 20121120

REACTIONS (6)
  - Sarcoidosis [Unknown]
  - Pulmonary hypertension [Unknown]
  - Haemoglobin decreased [Unknown]
  - Dizziness [Unknown]
  - Asthenia [Unknown]
  - Dyspnoea [Unknown]
